FAERS Safety Report 14109629 (Version 1)
Quarter: 2017Q4

REPORT INFORMATION
  Report Type: Spontaneous
  Country: SE (occurrence: SE)
  Receive Date: 20171020
  Receipt Date: 20171020
  Transmission Date: 20180321
  Serious: Yes (Death, Other)
  Sender: FDA-Public Use
  Company Number: SE-ROCHE-2009156

PATIENT
  Sex: Male

DRUGS (5)
  1. DOXORUBICIN [Concomitant]
     Active Substance: DOXORUBICIN
  2. VINCRISTINE [Concomitant]
     Active Substance: VINCRISTINE
  3. PREDNISONE. [Concomitant]
     Active Substance: PREDNISONE
  4. GAZYVARO [Suspect]
     Active Substance: OBINUTUZUMAB
     Indication: PRODUCT USED FOR UNKNOWN INDICATION
     Route: 065
  5. CYCLOPHOSPHAMIDE. [Concomitant]
     Active Substance: CYCLOPHOSPHAMIDE

REACTIONS (3)
  - Melaena [Unknown]
  - Death [Fatal]
  - Vomiting [Unknown]

NARRATIVE: CASE EVENT DATE: 201709
